FAERS Safety Report 6143471-5 (Version None)
Quarter: 2009Q2

REPORT INFORMATION
  Report Type: 
  Country: None (occurrence: None)
  Receive Date: 20090403
  Receipt Date: 20090401
  Transmission Date: 20091009
  Serious: Yes (Death, Other)
  Sender: FDA-Public Use
  Company Number: PHHY2009MX11257

PATIENT
  Sex: Male

DRUGS (2)
  1. DIOVAN HCT [Suspect]
     Indication: HYPERTENSION
     Dosage: 1 TABLET (160/25) MG PER DAY
     Route: 048
     Dates: start: 20061103
  2. ASPIRIN [Concomitant]
     Indication: CARDIAC DISORDER
     Dosage: 1 TABLET PER DAY
     Route: 048

REACTIONS (3)
  - COUGH [None]
  - INFLUENZA [None]
  - MYOCARDIAL INFARCTION [None]
